FAERS Safety Report 21349188 (Version 2)
Quarter: 2022Q3

REPORT INFORMATION
  Report Type: Report from Study
  Country: BR (occurrence: BR)
  Receive Date: 20220919
  Receipt Date: 20220928
  Transmission Date: 20221027
  Serious: Yes (Other)
  Sender: FDA-Public Use
  Company Number: BR-CELLTRION INC.-2022BR014881

PATIENT

DRUGS (6)
  1. INFLIXIMAB [Suspect]
     Active Substance: INFLIXIMAB
     Indication: Diverticulitis
     Dosage: 4 AMPOULES EVERY 2 MONTHS
     Route: 042
  2. INFLIXIMAB [Suspect]
     Active Substance: INFLIXIMAB
     Indication: Crohn^s disease
  3. LOSARTAN [Concomitant]
     Active Substance: LOSARTAN
     Indication: Hypertension
     Dosage: 50 MILLIGRAM, 2 PILLS PER DAY
     Route: 048
     Dates: start: 202208
  4. HYDROCHLOROTHIAZIDE [Concomitant]
     Active Substance: HYDROCHLOROTHIAZIDE
     Indication: Hypertension
     Dosage: 25 MILLIGRAM, 1 PILL PER DAY
     Route: 048
     Dates: start: 202208
  5. ENALAPRIL [Concomitant]
     Active Substance: ENALAPRIL
     Indication: Hypertension
     Dosage: 20 MILLIGRAM, 1 PILL PER DAY
     Route: 048
     Dates: start: 202208
  6. OMEPRAZOLE [Concomitant]
     Active Substance: OMEPRAZOLE
     Dosage: 40 MILLIGRAM, 1 CAP PER DAY
     Route: 048
     Dates: start: 202208, end: 202209

REACTIONS (4)
  - Diverticulitis [Unknown]
  - Anal haemorrhage [Unknown]
  - Therapy interrupted [Unknown]
  - Off label use [Unknown]
